FAERS Safety Report 8387373-2 (Version None)
Quarter: 2012Q2

REPORT INFORMATION
  Report Type: 
  Country: None (occurrence: None)
  Receive Date: 20120525
  Receipt Date: 20120518
  Transmission Date: 20120825
  Serious: Yes (Life-Threatening, Hospitalization)
  Sender: FDA-Public Use
  Company Number: BR-ROCHE-696641

PATIENT
  Sex: Male
  Weight: 82 kg

DRUGS (76)
  1. ROFERON-A [Suspect]
     Dosage: DOSE REDUCED  DOSE: 6MU SINCE CYCLE 4
     Route: 042
  2. GLYBURIDE [Concomitant]
     Dates: start: 20100414, end: 20100424
  3. PAROXETINE [Concomitant]
     Dates: start: 20100509
  4. LEVOTHYROXINE SODIUM [Concomitant]
     Dates: start: 20100427, end: 20100427
  5. OMEPRAZOLE [Concomitant]
     Dates: start: 20100425, end: 20100425
  6. DRAMIN [Concomitant]
     Indication: PROPHYLAXIS OF NAUSEA AND VOMITING
     Dates: start: 20100202, end: 20100403
  7. MAGNESIUM OXIDE [Concomitant]
     Indication: PROPHYLAXIS
     Dates: start: 20100428, end: 20100428
  8. BROMOPRIDE [Concomitant]
     Indication: PROPHYLAXIS
     Dates: start: 20100430, end: 20100506
  9. IPRATROPIUM BROMIDE [Concomitant]
     Dates: start: 20100428, end: 20100428
  10. GLICERINA [Concomitant]
     Indication: PROPHYLAXIS
     Dates: start: 20100502, end: 20100504
  11. SODIUM CHLORIDE [Concomitant]
     Dates: start: 20100425, end: 20100428
  12. HALOPERIDOL [Concomitant]
     Indication: PROPHYLAXIS
     Dates: start: 20100503, end: 20100503
  13. GLYBURIDE [Concomitant]
     Indication: DIABETES MELLITUS
     Dates: start: 20100128, end: 20100403
  14. GLYBURIDE [Concomitant]
     Dates: start: 20100429, end: 20100429
  15. PAROXETINE [Concomitant]
     Dates: start: 20100427, end: 20100429
  16. LEVOTHYROXINE SODIUM [Concomitant]
     Indication: HYPOTHYROIDISM
     Dates: start: 20080101, end: 20100404
  17. LEVOTHYROXINE SODIUM [Concomitant]
     Dates: start: 20100407, end: 20100408
  18. HEPARIN [Concomitant]
     Indication: THROMBOSIS PROPHYLAXIS
     Dates: start: 20100412, end: 20100412
  19. BROMAZEPAM [Concomitant]
     Dates: start: 20100427, end: 20100428
  20. DIPYRONE TAB [Concomitant]
     Dates: start: 20100504, end: 20100504
  21. MINERAL OIL [Concomitant]
     Indication: PROPHYLAXIS
     Dates: start: 20100501, end: 20100503
  22. IPRATROPIUM BROMIDE [Concomitant]
     Indication: PROPHYLAXIS
     Dates: start: 20100501, end: 20100509
  23. SODIUM CHLORIDE [Concomitant]
     Indication: PROPHYLAXIS
     Dates: start: 20100409, end: 20100412
  24. DRAMIN [Concomitant]
     Route: 065
     Dates: start: 20100414
  25. AVASTIN [Suspect]
     Indication: RENAL CELL CARCINOMA
     Dosage: FREQUENCY REPORTED EVERY OTHER WEEK
     Route: 042
     Dates: start: 20091216, end: 20100324
  26. ROFERON-A [Suspect]
     Indication: RENAL CELL CARCINOMA
     Route: 058
  27. ONDANSETRON [Concomitant]
     Dates: start: 20100414, end: 20100424
  28. BETAHISTINE [Concomitant]
     Dates: start: 20100414, end: 20100424
  29. BETAHISTINE [Concomitant]
     Dates: start: 20100510
  30. LEVOTHYROXINE SODIUM [Concomitant]
     Dates: start: 20100429, end: 20100429
  31. DIPYRONE TAB [Concomitant]
     Dates: start: 20100410, end: 20100413
  32. DIPYRONE TAB [Concomitant]
     Dates: start: 20100501, end: 20100502
  33. DIMETICONE [Concomitant]
     Indication: PROPHYLAXIS
     Dates: start: 20100501, end: 20100508
  34. IPRATROPIUM BROMIDE [Concomitant]
     Dates: start: 20100501, end: 20100509
  35. HALOPERIDOL [Concomitant]
     Dates: start: 20100506, end: 20100509
  36. DOMPERIDONE [Concomitant]
     Indication: PROPHYLAXIS
     Dates: start: 20100506, end: 20100509
  37. OMEPRAZOLE [Concomitant]
     Dates: start: 20100430, end: 20100509
  38. CLORPROMAZINA [Concomitant]
     Indication: PROPHYLAXIS
     Dates: start: 20100428, end: 20100429
  39. TRAMADOL HCL [Concomitant]
     Indication: PROPHYLAXIS
     Dates: start: 20100425, end: 20100425
  40. DRAMIN [Concomitant]
     Indication: PROPHYLAXIS
     Route: 065
     Dates: start: 20100202, end: 20100403
  41. GLYBURIDE [Concomitant]
     Dates: start: 20100427, end: 20100427
  42. DORFLEX [Concomitant]
     Indication: PAIN PROPHYLAXIS
     Dates: start: 20100103, end: 20100403
  43. PAROXETINE [Concomitant]
     Dates: start: 20100502, end: 20100502
  44. DOMPERIDONE [Concomitant]
     Dates: start: 20100506, end: 20100509
  45. ATROVENT [Concomitant]
     Indication: PROPHYLAXIS
     Dates: start: 20100428, end: 20100428
  46. DIPYRONE TAB [Concomitant]
     Dates: start: 20100425, end: 20100429
  47. TRIGLYCERIDES [Concomitant]
     Indication: PROPHYLAXIS
     Dates: start: 20100503, end: 20100509
  48. GLYBURIDE [Concomitant]
     Dates: start: 20100502, end: 20100503
  49. PAROXETINE [Concomitant]
     Indication: DEPRESSION
     Dates: start: 20091230, end: 20100405
  50. PAROXETINE [Concomitant]
     Dates: start: 20100504, end: 20100507
  51. ONDANSETRON [Concomitant]
     Dates: start: 20100501, end: 20100504
  52. LEVOTHYROXINE SODIUM [Concomitant]
     Dates: start: 20100414, end: 20100424
  53. LEVOTHYROXINE SODIUM [Concomitant]
     Dates: start: 20100504
  54. BROMAZEPAM [Concomitant]
     Dates: start: 20100414
  55. OMEPRAZOLE [Concomitant]
     Indication: DYSPEPSIA
     Dates: start: 20100411, end: 20100412
  56. CLOBUTINOL [Concomitant]
     Indication: PAIN PROPHYLAXIS
     Dates: start: 20100428, end: 20100428
  57. DORFLEX [Concomitant]
     Dates: start: 20100414, end: 20100424
  58. ONDANSETRON [Concomitant]
     Indication: PROPHYLAXIS OF NAUSEA AND VOMITING
     Dates: start: 20100310, end: 20100403
  59. ONDANSETRON [Concomitant]
     Dates: start: 20100407, end: 20100408
  60. DOMPERIDONE [Concomitant]
     Dates: start: 20100414, end: 20100424
  61. BROMAZEPAM [Concomitant]
     Indication: PROPHYLAXIS
     Dates: start: 20100412, end: 20100412
  62. DRAMIN [Concomitant]
     Dates: start: 20100414, end: 20100424
  63. HEPARIN [Concomitant]
     Dates: start: 20100430, end: 20100509
  64. DEXPANTHENOL [Concomitant]
     Indication: PROPHYLAXIS
     Dates: start: 20100506, end: 20100509
  65. GLYBURIDE [Concomitant]
     Dates: start: 20100405, end: 20100405
  66. GLYBURIDE [Concomitant]
     Dates: start: 20100407, end: 20100408
  67. GLYBURIDE [Concomitant]
     Dates: start: 20100510
  68. PAROXETINE [Concomitant]
     Dates: start: 20100414, end: 20100424
  69. DOMPERIDONE [Concomitant]
     Indication: PROPHYLAXIS OF NAUSEA AND VOMITING
     Dates: start: 20100324, end: 20100408
  70. BETAHISTINE [Concomitant]
     Indication: DIZZINESS
     Dates: start: 20100324, end: 20100406
  71. LEVOTHYROXINE SODIUM [Concomitant]
     Dates: start: 20100502, end: 20100502
  72. HEPARIN [Concomitant]
     Dates: start: 20100425, end: 20100425
  73. DIPYRONE TAB [Concomitant]
     Indication: PROPHYLAXIS
     Dates: start: 20100403
  74. DIPYRONE TAB [Concomitant]
     Dates: start: 20100508, end: 20100508
  75. LORAZEPAM [Concomitant]
     Indication: PROPHYLAXIS
     Dates: start: 20100501, end: 20100502
  76. FENOTEROL [Concomitant]
     Indication: PROPHYLAXIS
     Dates: start: 20100501, end: 20100509

REACTIONS (4)
  - APPENDICITIS [None]
  - INTESTINAL FISTULA [None]
  - GASTROINTESTINAL PERFORATION [None]
  - PERITONITIS [None]
